FAERS Safety Report 10192221 (Version 1)
Quarter: 2014Q2

REPORT INFORMATION
  Report Type: Spontaneous
  Country: US (occurrence: US)
  Receive Date: 20140523
  Receipt Date: 20140523
  Transmission Date: 20141212
  Serious: No
  Sender: FDA-Public Use
  Company Number: US-AMARIN PHARMA, INC.-2014AMR000023

PATIENT
  Sex: Female
  Weight: 62.65 kg

DRUGS (7)
  1. VASCEPA [Suspect]
     Indication: BLOOD CHOLESTEROL
     Dosage: FOUR CAPSULES PER DAY
  2. LIVALO [Concomitant]
     Indication: BLOOD CHOLESTEROL
  3. CO-Q-10 [Concomitant]
     Indication: PRODUCT USED FOR UNKNOWN INDICATION
  4. RED YEAST RICE [Concomitant]
     Indication: PRODUCT USED FOR UNKNOWN INDICATION
  5. MEGA WOMEN^S VITAMIN [Concomitant]
     Indication: PRODUCT USED FOR UNKNOWN INDICATION
  6. FIBER [Concomitant]
     Indication: PRODUCT USED FOR UNKNOWN INDICATION
  7. ANTIOXIDANT [Concomitant]
     Indication: PRODUCT USED FOR UNKNOWN INDICATION

REACTIONS (1)
  - Vitamin B12 increased [Not Recovered/Not Resolved]
